FAERS Safety Report 5335767-1 (Version None)
Quarter: 2007Q2

REPORT INFORMATION
  Report Type: 
  Country: None (occurrence: None)
  Receive Date: 20070322
  Receipt Date: 20070208
  Transmission Date: 20071010
  Serious: No
  Sender: FDA-Public Use
  Company Number: 2007US000358

PATIENT
  Age: 86 Year
  Sex: 0

DRUGS (4)
  1. VESICARE [Suspect]
     Indication: URINARY INCONTINENCE
     Dosage: 5MG, ORAL
     Route: 048
  2. TOPROL-XL [Concomitant]
  3. MULTIVITAMIN [Concomitant]
  4. PAIN KILLERS [Concomitant]

REACTIONS (1)
  - DRUG INEFFECTIVE [None]
